FAERS Safety Report 12850390 (Version 1)
Quarter: 2016Q4

REPORT INFORMATION
  Report Type: Spontaneous
  Country: US (occurrence: US)
  Receive Date: 20161014
  Receipt Date: 20161014
  Transmission Date: 20170207
  Serious: No
  Sender: FDA-Public Use
  Company Number: US-009507513-1610USA003103

PATIENT
  Age: 21 Year
  Sex: Female

DRUGS (3)
  1. HEXADROL [Suspect]
     Active Substance: DEXAMETHASONE
     Indication: INFLAMMATION
     Dosage: 10 MG EVERY 8 HX3 WITH TAPER
     Route: 048
  2. BUPROPION HYDROCHLORIDE. [Concomitant]
     Active Substance: BUPROPION HYDROCHLORIDE
     Dosage: 13.5 G, UNK
  3. HEXADROL [Suspect]
     Active Substance: DEXAMETHASONE
     Indication: EXCESSIVE GRANULATION TISSUE

REACTIONS (1)
  - Leukocytosis [Unknown]
